FAERS Safety Report 10018019 (Version 2)
Quarter: 2014Q2

REPORT INFORMATION
  Report Type: Spontaneous
  Country: US (occurrence: US)
  Receive Date: 20140318
  Receipt Date: 20140512
  Transmission Date: 20141212
  Serious: Yes (Other)
  Sender: FDA-Public Use
  Company Number: US-NOVOPROD-402853

PATIENT
  Age: 63 Year
  Sex: Male
  Weight: 92.97 kg

DRUGS (4)
  1. NOVOLOG FLEXPEN [Suspect]
     Indication: TYPE 2 DIABETES MELLITUS
     Dosage: 30 UNITS THREE TIMES DAILY
     Route: 058
     Dates: start: 2006
  2. LANTUS [Concomitant]
     Indication: TYPE 2 DIABETES MELLITUS
  3. LYRICA [Concomitant]
     Indication: NEURALGIA
  4. ENALAPRIL MALEATE [Concomitant]
     Indication: BLOOD PRESSURE INCREASED

REACTIONS (2)
  - Hepatic cancer metastatic [Not Recovered/Not Resolved]
  - Hepatic cirrhosis [Unknown]
